FAERS Safety Report 24836820 (Version 1)
Quarter: 2025Q1

REPORT INFORMATION
  Report Type: Spontaneous
  Country: GR (occurrence: GR)
  Receive Date: 20250113
  Receipt Date: 20250113
  Transmission Date: 20250409
  Serious: Yes (Other)
  Sender: MYLAN
  Company Number: GR-002147023-NVSC2024GR245852

PATIENT
  Age: 53 Year
  Sex: Female

DRUGS (1)
  1. FINGOLIMOD [Suspect]
     Active Substance: FINGOLIMOD
     Indication: Relapsing-remitting multiple sclerosis
     Dosage: 0.5 MILLIGRAM, QD
     Route: 065

REACTIONS (1)
  - Central serous chorioretinopathy [Recovering/Resolving]
